FAERS Safety Report 8359233-4 (Version None)
Quarter: 2012Q2

REPORT INFORMATION
  Report Type: 
  Country: None (occurrence: None)
  Receive Date: 20120511
  Receipt Date: 20120425
  Transmission Date: 20120825
  Serious: Yes (Other)
  Sender: FDA-Public Use
  Company Number: TPA2012A02431

PATIENT
  Age: 8 Decade
  Sex: Male

DRUGS (1)
  1. ACTOS [Suspect]
     Dosage: 30 MG

REACTIONS (2)
  - BLADDER CANCER [None]
  - PROSTATE CANCER [None]
